FAERS Safety Report 14592032 (Version 1)
Quarter: 2018Q1

REPORT INFORMATION
  Report Type: Spontaneous
  Country: US (occurrence: US)
  Receive Date: 20180301
  Receipt Date: 20180301
  Transmission Date: 20180509
  Serious: Yes (Hospitalization, Other)
  Sender: FDA-Public Use
  Company Number: None

PATIENT
  Age: 66 Year
  Sex: Female
  Weight: 65.25 kg

DRUGS (2)
  1. EXECEDRIN ASPIRIN [Concomitant]
     Dates: start: 20170101, end: 20180101
  2. IMITREX [Suspect]
     Active Substance: SUMATRIPTAN SUCCINATE
     Indication: MIGRAINE
     Dosage: ?          OTHER FREQUENCY:AS NECESSARY;?
     Route: 048
     Dates: start: 20170101, end: 20180101

REACTIONS (5)
  - Cerebrovascular accident [None]
  - Arrhythmia [None]
  - Fear [None]
  - Dizziness [None]
  - Haemorrhagic diathesis [None]

NARRATIVE: CASE EVENT DATE: 20171107
